FAERS Safety Report 15181062 (Version 1)
Quarter: 2018Q3

REPORT INFORMATION
  Report Type: Spontaneous
  Country: GT (occurrence: GT)
  Receive Date: 20180624
  Receipt Date: 20180624
  Transmission Date: 20181010
  Serious: Yes (Disabling)
  Sender: FDA-Public Use
  Company Number: None

PATIENT
  Age: 48 Year
  Sex: Male
  Weight: 72 kg

DRUGS (4)
  1. TESTOSTERONE INJECTIONS [Suspect]
     Active Substance: TESTOSTERONE
     Indication: PRODUCT USED FOR UNKNOWN INDICATION
     Dosage: ?          OTHER FREQUENCY:EVERY 3 MONTHS;?
     Route: 030
     Dates: start: 20180215
  2. METFORMINA [Concomitant]
     Active Substance: METFORMIN HYDROCHLORIDE
  3. QUINAGOLIDA [Concomitant]
  4. CIPROFIBRATO [Concomitant]
     Active Substance: CIPROFIBRATE

REACTIONS (5)
  - Musculoskeletal pain [None]
  - Chest pain [None]
  - Pain in extremity [None]
  - Myalgia [None]
  - Back pain [None]

NARRATIVE: CASE EVENT DATE: 20180620
